FAERS Safety Report 6814606-3 (Version None)
Quarter: 2010Q3

REPORT INFORMATION
  Report Type: 
  Country: None (occurrence: None)
  Receive Date: 20100702
  Receipt Date: 20100630
  Transmission Date: 20110219
  Serious: Yes (Hospitalization)
  Sender: FDA-Public Use
  Company Number: IE-NAPPMUNDI-GBR-2009-0005137

PATIENT
  Sex: Female
  Weight: 89 kg

DRUGS (17)
  1. MS CONTIN [Suspect]
     Indication: ANALGESIC THERAPY
     Dosage: 10 MG, AM
     Route: 065
  2. MS CONTIN [Suspect]
     Dosage: 15 MG, NOCTE
     Route: 048
  3. ORAMORPH SR [Suspect]
     Indication: ANALGESIC THERAPY
     Dosage: 5 MG, PRN
     Route: 065
  4. XELODA [Suspect]
     Indication: BREAST CANCER
     Dosage: 2000 MG, BID, DAY 1 TO 14 EVERY 3 WEEKS
     Route: 048
     Dates: start: 20081013
  5. PREGABALIN [Suspect]
     Indication: ANALGESIC THERAPY
     Dosage: 25 MG, BID
     Route: 065
  6. DIOCTYL [Concomitant]
     Indication: CONSTIPATION
     Dosage: 100 MG, BID
  7. HALOPERIDOL [Concomitant]
     Indication: PROPHYLAXIS OF NAUSEA AND VOMITING
     Dosage: 1.5 MG, NOCTE
  8. VALOID                             /00014902/ [Concomitant]
     Indication: PROPHYLAXIS OF NAUSEA AND VOMITING
     Dosage: 50 MG, TID
  9. CIPRAMIL                           /00582602/ [Concomitant]
     Indication: DEPRESSION
     Dosage: 20 MG, NOCTE
  10. ZIMOVANE [Concomitant]
     Indication: INSOMNIA
     Dosage: 7.5 MG, NOCTE
  11. MILPAR                             /00259101/ [Concomitant]
     Indication: CONSTIPATION
     Dosage: 15 ML, TID
  12. DUPHALAC [Concomitant]
     Indication: CONSTIPATION
     Dosage: 15 ML, BID
  13. ZOTON [Concomitant]
     Indication: GASTROOESOPHAGEAL REFLUX PROPHYLAXIS
     Dosage: 30 MG, DAILY
  14. DEXAMETHASONE [Concomitant]
     Indication: STEROID THERAPY
     Dosage: 8 MG, BID
     Dates: start: 20090427
  15. INNOHEP                            /01707902/ [Concomitant]
     Indication: ANTICOAGULANT THERAPY
     Dosage: 14000 IU, DAILY
     Dates: start: 20090427
  16. HEPSAL [Concomitant]
     Dosage: 5 ML, PRN
     Dates: start: 20090427
  17. MOTILIUM [Concomitant]
     Indication: PROPHYLAXIS OF NAUSEA AND VOMITING
     Dosage: 10 MG, PRN

REACTIONS (2)
  - FATIGUE [None]
  - PAIN [None]
